FAERS Safety Report 18904451 (Version 1)
Quarter: 2021Q1

REPORT INFORMATION
  Report Type: Spontaneous
  Country: US (occurrence: US)
  Receive Date: 20210217
  Receipt Date: 20210217
  Transmission Date: 20210420
  Serious: No
  Sender: FDA-Public Use
  Company Number: None

PATIENT
  Age: 46 Year
  Sex: Male
  Weight: 45.6 kg

DRUGS (20)
  1. REMDESIVIR. [Suspect]
     Active Substance: REMDESIVIR
     Indication: COVID-19 PNEUMONIA
     Dosage: ?          OTHER FREQUENCY:200MG X1, 100MG/D;?
     Route: 042
     Dates: start: 20210109, end: 20210113
  2. APIXABAN 2.5MG PO BID [Concomitant]
     Dates: start: 20210124, end: 20210208
  3. CLONIDINE 0.4MG PO BID [Concomitant]
     Dates: start: 20210122, end: 20210131
  4. PROPOFOL IV INFUSION [Concomitant]
     Dates: start: 20210122, end: 20210203
  5. INSULIN LISPRO SSI 4/XDAY [Concomitant]
     Dates: start: 20210109, end: 20210208
  6. ATRACURIUM INFUSION [Concomitant]
     Dates: start: 20210130, end: 20210202
  7. CEFTRIAXONE 2G IV DAILY [Concomitant]
     Dates: start: 20210131, end: 20210203
  8. DEXAMETHASONE 6MG IV Q24H THEN Q8H THEN Q12H [Concomitant]
     Dates: start: 20210114, end: 20210203
  9. FENTANYL IV INFUSION [Concomitant]
     Dates: start: 20210122, end: 20210208
  10. BENZONATATE 200MG PO Q8H [Concomitant]
     Dates: start: 20210113, end: 20210122
  11. CEFEPIME 1G IV Q12H [Concomitant]
     Dates: start: 20210109, end: 20210112
  12. LINEZOLID 600MG IV Q12H [Concomitant]
     Dates: start: 20210114, end: 20210123
  13. CELLCEPT 1000MG G TUBE BID [Concomitant]
     Dates: start: 20210109, end: 20210208
  14. DEXMEDETOMIDINE IV INFUSION [Concomitant]
     Dates: start: 20210128, end: 20210204
  15. ALBUMIN 25% 50 GRAMS IV PRN SBP { 90 [Concomitant]
     Dates: start: 20210123, end: 20210130
  16. ATORVASTATIN 10MG QHS [Concomitant]
     Dates: start: 20210109, end: 20210208
  17. AZITHROMYCIN 500MG IV DAILY [Concomitant]
     Dates: start: 20210109, end: 20210112
  18. LANTUS PER PHARMACY PROTOCOL QHS [Concomitant]
     Dates: start: 20210109, end: 20210208
  19. NOREPINEPHRINE IV INFUSION [Concomitant]
     Dates: start: 20210127, end: 20210208
  20. TACROLIMUS 2MG GTUBE Q12H THEN 3MG Q12H ON 1/26?1/30 THEN 4MG Q12H [Concomitant]
     Dates: start: 20210122, end: 20210202

REACTIONS (8)
  - Proteinuria [None]
  - Haemodialysis [None]
  - Renal impairment [None]
  - Blood creatinine increased [None]
  - Creatinine renal clearance decreased [None]
  - Respiratory distress [None]
  - Immunosuppressant drug level decreased [None]
  - Agitation [None]

NARRATIVE: CASE EVENT DATE: 20210123
